FAERS Safety Report 16194057 (Version 2)
Quarter: 2019Q2

REPORT INFORMATION
  Report Type: Spontaneous
  Country: US (occurrence: US)
  Receive Date: 20190413
  Receipt Date: 20190429
  Transmission Date: 20190711
  Serious: No
  Sender: FDA-Public Use
  Company Number: US-JNJFOC-20190334660

PATIENT
  Sex: Female

DRUGS (17)
  1. DURAGESIC [Suspect]
     Active Substance: FENTANYL
     Indication: FIBROMYALGIA
     Route: 062
  2. CELEBREX [Suspect]
     Active Substance: CELECOXIB
     Indication: PRODUCT USED FOR UNKNOWN INDICATION
     Route: 065
  3. LYRICA [Suspect]
     Active Substance: PREGABALIN
     Indication: PRODUCT USED FOR UNKNOWN INDICATION
     Route: 065
  4. VIT B1 [Concomitant]
     Active Substance: THIAMINE HYDROCHLORIDE
     Route: 065
  5. DURAGESIC [Suspect]
     Active Substance: FENTANYL
     Indication: POLYARTHRITIS
     Route: 062
  6. DURAGESIC [Suspect]
     Active Substance: FENTANYL
     Indication: FIBROMYALGIA
     Route: 062
  7. MARIJUANA [Suspect]
     Active Substance: CANNABIS SATIVA SUBSP. INDICA TOP
     Indication: PRODUCT USED FOR UNKNOWN INDICATION
     Route: 065
  8. DURAGESIC [Suspect]
     Active Substance: FENTANYL
     Indication: OSTEOPENIA
     Route: 062
  9. DURAGESIC [Suspect]
     Active Substance: FENTANYL
     Indication: POLYARTHRITIS
     Route: 062
  10. SYNTHROID [Concomitant]
     Active Substance: LEVOTHYROXINE SODIUM
     Route: 065
  11. ZOMIG [Concomitant]
     Active Substance: ZOLMITRIPTAN
     Indication: MIGRAINE
     Route: 045
  12. ALBUTEROL SULFATE. [Concomitant]
     Active Substance: ALBUTEROL SULFATE
     Indication: ASTHMA
     Route: 065
  13. DURAGESIC [Suspect]
     Active Substance: FENTANYL
     Indication: OSTEOPENIA
     Route: 062
  14. VITAMIN D3 [Concomitant]
     Active Substance: CHOLECALCIFEROL
     Route: 065
  15. THIAMINE. [Concomitant]
     Active Substance: THIAMINE
     Route: 065
  16. CYMBALTA [Suspect]
     Active Substance: DULOXETINE HYDROCHLORIDE
     Indication: PRODUCT USED FOR UNKNOWN INDICATION
     Route: 065
  17. MUPIROCIN. [Concomitant]
     Active Substance: MUPIROCIN
     Indication: SKIN DISORDER
     Route: 061

REACTIONS (4)
  - Feeling abnormal [Unknown]
  - Drug ineffective [Unknown]
  - Skin disorder [Unknown]
  - Osteoporosis [Unknown]

NARRATIVE: CASE EVENT DATE: 2018
